FAERS Safety Report 9969984 (Version 2)
Quarter: 2015Q1

REPORT INFORMATION
  Report Type: Spontaneous
  Country: US (occurrence: None)
  Receive Date: 20140131
  Receipt Date: 20150129
  Transmission Date: 20150721
  Serious: Yes (Hospitalization, Other)
  Sender: FDA-Public Use
  Company Number: 092869

PATIENT
  Age: 52 Year
  Sex: Male
  Weight: 81.6 kg

DRUGS (4)
  1. KEPPRA [Suspect]
     Active Substance: LEVETIRACETAM
     Indication: SEIZURE
     Route: 048
  2. NARCO/ASA (HYDROCODONE BITARTRATE, PARACETAMOL) [Concomitant]
  3. PHENOBARBITAL  (PHENOBARBITAL) [Concomitant]
     Active Substance: PHENOBARBITAL
  4. KEPPRA XR [Suspect]
     Active Substance: LEVETIRACETAM
     Indication: SEIZURE
     Dosage: 750 MG, 4 TIMES (2 IN AM AND 2 IN PM)
     Dates: start: 20110917, end: 201306

REACTIONS (7)
  - Inappropriate schedule of drug administration [None]
  - Amnesia [None]
  - Seizure [None]
  - Anxiety [None]
  - Petit mal epilepsy [None]
  - Generalised tonic-clonic seizure [None]
  - Depression [None]

NARRATIVE: CASE EVENT DATE: 20110917
